FAERS Safety Report 24813216 (Version 2)
Quarter: 2025Q1

REPORT INFORMATION
  Report Type: Report from Study
  Country: IL (occurrence: IL)
  Receive Date: 20250107
  Receipt Date: 20250128
  Transmission Date: 20250408
  Serious: Yes (Other)
  Sender: MERCK KGAA
  Company Number: IL-Merck Healthcare KGaA-2024068970

PATIENT
  Age: 62 Year
  Sex: Female

DRUGS (1)
  1. EUTHYROX [Suspect]
     Active Substance: LEVOTHYROXINE SODIUM
     Indication: Product used for unknown indication

REACTIONS (9)
  - Blindness [Recovering/Resolving]
  - Toothache [Recovering/Resolving]
  - Myalgia [Recovering/Resolving]
  - Thinking abnormal [Recovering/Resolving]
  - Amnesia [Recovering/Resolving]
  - Night sweats [Recovering/Resolving]
  - Pruritus [Recovering/Resolving]
  - Heart rate increased [Recovering/Resolving]
  - Inappropriate schedule of product administration [Unknown]
